FAERS Safety Report 12273652 (Version 1)
Quarter: 2016Q2

REPORT INFORMATION
  Report Type: Other
  Country: US (occurrence: US)
  Receive Date: 20160415
  Receipt Date: 20160415
  Transmission Date: 20160815
  Serious: Yes (Other)
  Sender: FDA-Public Use
  Company Number: US-COL_22600_2016

PATIENT
  Sex: Female

DRUGS (1)
  1. COLGATE TOOTHPASTE [Suspect]
     Active Substance: SODIUM MONOFLUOROPHOSPHATE
     Indication: DENTAL DISORDER PROPHYLAXIS
     Dosage: COVERED THE WHOLE HEAD OF THE BRUSH/ 2-3 TIMES PER DAY/
     Route: 048

REACTIONS (3)
  - Precancerous mucosal lesion [Recovered/Resolved]
  - Burning sensation mucosal [Recovered/Resolved]
  - Tooth disorder [Recovered/Resolved]
